FAERS Safety Report 15215364 (Version 1)
Quarter: 2018Q3

REPORT INFORMATION
  Report Type: Other
  Country: FR (occurrence: FR)
  Receive Date: 20180730
  Receipt Date: 20180730
  Transmission Date: 20181010
  Serious: Yes (Hospitalization, Other)
  Sender: FDA-Public Use
  Company Number: FR-COVIS PHARMA B.V.-2018COV03718

PATIENT
  Age: 74 Year
  Sex: Male

DRUGS (4)
  1. COVERAM [Suspect]
     Active Substance: AMLODIPINE\PERINDOPRIL
     Route: 048
  2. KARDEGIC [Suspect]
     Active Substance: ASPIRIN DL-LYSINE
     Route: 048
  3. BISOPROLOL [Suspect]
     Active Substance: BISOPROLOL
     Route: 048
  4. PRILOSEC [Suspect]
     Active Substance: OMEPRAZOLE MAGNESIUM
     Route: 048

REACTIONS (2)
  - Encephalopathy [Not Recovered/Not Resolved]
  - Myoclonus [Not Recovered/Not Resolved]

NARRATIVE: CASE EVENT DATE: 2010
